FAERS Safety Report 6522325-6 (Version None)
Quarter: 2009Q4

REPORT INFORMATION
  Report Type: 
  Country: None (occurrence: None)
  Receive Date: 20091230
  Receipt Date: 20091223
  Transmission Date: 20100525
  Serious: Yes (Hospitalization)
  Sender: FDA-Public Use
  Company Number: B0618888A

PATIENT
  Sex: Female
  Weight: 65.6 kg

DRUGS (3)
  1. PAZOPANIB [Suspect]
     Indication: SARCOMA
     Dosage: 800MG PER DAY
     Route: 048
     Dates: start: 20090915
  2. PANTOPRAZOL [Concomitant]
     Dosage: 20MG PER DAY
     Route: 048
     Dates: start: 20090922
  3. OPIPRAMOL [Concomitant]
     Dosage: 100MG PER DAY
     Route: 048
     Dates: start: 20090401

REACTIONS (1)
  - TUMOUR PAIN [None]
